FAERS Safety Report 15351325 (Version 4)
Quarter: 2019Q1

REPORT INFORMATION
  Report Type: Spontaneous
  Country: US (occurrence: US)
  Receive Date: 20180905
  Receipt Date: 20190219
  Transmission Date: 20190417
  Serious: No
  Sender: FDA-Public Use
  Company Number: US-PFIZER INC-2018063485

PATIENT
  Age: 66 Year
  Sex: Male

DRUGS (5)
  1. LYRICA [Suspect]
     Active Substance: PREGABALIN
     Indication: TYPE 2 DIABETES MELLITUS
     Dosage: 100 MG, 3X/DAY (QTY: 270/180 DAYS)
     Route: 048
  2. LYRICA [Suspect]
     Active Substance: PREGABALIN
     Indication: NEUROPATHY PERIPHERAL
  3. LYRICA [Suspect]
     Active Substance: PREGABALIN
     Indication: HYPERGLYCAEMIA
     Dosage: 100 MG, 2X/DAY
  4. LYRICA [Suspect]
     Active Substance: PREGABALIN
     Indication: POLYNEUROPATHY
  5. LYRICA [Suspect]
     Active Substance: PREGABALIN
     Indication: NEUROLOGICAL SYMPTOM

REACTIONS (1)
  - Discomfort [Unknown]
